FAERS Safety Report 9525593 (Version 2)
Quarter: 2013Q4

REPORT INFORMATION
  Report Type: Report from Study
  Country: FR (occurrence: FR)
  Receive Date: 20130915
  Receipt Date: 20131031
  Transmission Date: 20140711
  Serious: Yes (Hospitalization)
  Sender: FDA-Public Use
  Company Number: PHHY2013FR099006

PATIENT
  Age: 13 Year
  Sex: Male

DRUGS (6)
  1. TOBRAMYCIN INHALATION POWDER [Suspect]
     Indication: CYSTIC FIBROSIS
     Dosage: 8 DF, DAILY FOR EVERY OTHER MONTH
     Dates: start: 20130314
  2. TOBRAMYCIN INHALATION POWDER [Suspect]
     Indication: PNEUMONIA PSEUDOMONAL
     Dosage: 8 DF, DAILY FOR EVERY OTHER MONTH
     Dates: end: 20130414
  3. TOBRAMYCIN INHALATION POWDER [Suspect]
     Dosage: UNK
  4. NUBAIN [Concomitant]
     Indication: PAIN
     Dosage: 20 MG, QID
     Dates: start: 20130510, end: 20130510
  5. PARACETAMOL [Concomitant]
     Indication: PAIN
     Dosage: 60 MG, QD
     Dates: start: 20130510, end: 20130510
  6. GASTROGRAFIN [Concomitant]
     Dosage: UNK

REACTIONS (2)
  - Distal intestinal obstruction syndrome [Recovered/Resolved]
  - Vomiting [Unknown]
